FAERS Safety Report 4422255-X (Version None)
Quarter: 2004Q3

REPORT INFORMATION
  Report Type: 
  Country: None (occurrence: None)
  Receive Date: 20040810
  Receipt Date: 20030929
  Transmission Date: 20050211
  Serious: Yes (Hospitalization, Other)
  Sender: FDA-Public Use
  Company Number: US-MERCK-0310USA00142

PATIENT
  Age: 46 Year
  Sex: Male
  Weight: 191 kg

DRUGS (16)
  1. ACETAMINOPHEN AND HYDROCODONE BITARTRATE [Concomitant]
     Route: 065
  2. NORVASC [Concomitant]
     Route: 065
  3. CELEBREX [Concomitant]
     Route: 065
  4. CLONIDINE [Concomitant]
     Route: 065
  5. PROZAC [Concomitant]
     Indication: DEPRESSION
     Route: 065
  6. FLONASE [Concomitant]
     Route: 065
  7. GLUCOTROL [Concomitant]
     Route: 065
  8. HYZAAR [Concomitant]
     Route: 048
  9. IMDUR [Concomitant]
     Route: 065
  10. CLARITIN [Concomitant]
     Route: 065
  11. GLUCOPHAGE [Concomitant]
     Route: 065
  12. METHOCARBAMOL [Concomitant]
     Route: 065
  13. GLYSET [Concomitant]
     Route: 065
  14. NITROQUICK [Concomitant]
     Route: 060
  15. VIOXX [Suspect]
     Indication: PAIN
     Route: 048
     Dates: start: 20000101
  16. AVANDIA [Concomitant]
     Route: 065

REACTIONS (27)
  - ABDOMINAL PAIN UPPER [None]
  - ACUTE STRESS DISORDER [None]
  - ANAEMIA [None]
  - ATHEROSCLEROSIS [None]
  - BACK PAIN [None]
  - BLINDNESS [None]
  - BLOOD CREATINE PHOSPHOKINASE MB INCREASED [None]
  - BLOOD URINE PRESENT [None]
  - CHEST PAIN [None]
  - DIABETES MELLITUS INADEQUATE CONTROL [None]
  - DIABETIC NEUROPATHY [None]
  - DYSPEPSIA [None]
  - EMOTIONAL DISTRESS [None]
  - FALL [None]
  - GASTROINTESTINAL HAEMORRHAGE [None]
  - GASTROOESOPHAGEAL REFLUX DISEASE [None]
  - HAEMATOCHEZIA [None]
  - LOCALISED INFECTION [None]
  - LOSS OF CONSCIOUSNESS [None]
  - MYOCARDIAL ISCHAEMIA [None]
  - PNEUMONIA [None]
  - PROCTALGIA [None]
  - PROSTATITIS [None]
  - RECTAL HAEMORRHAGE [None]
  - SPINAL COLUMN STENOSIS [None]
  - SYNCOPE [None]
  - URETHRAL DISCHARGE [None]
